FAERS Safety Report 15271340 (Version 2)
Quarter: 2018Q3

REPORT INFORMATION
  Report Type: Spontaneous
  Country: CA (occurrence: CA)
  Receive Date: 20180813
  Receipt Date: 20180910
  Transmission Date: 20181010
  Serious: Yes (Other)
  Sender: FDA-Public Use
  Company Number: CA-TARO PHARMACEUTICALS USA.,INC-2018SUN00412

PATIENT
  Age: 64 Year
  Sex: Female
  Weight: 65.76 kg

DRUGS (2)
  1. BETADERM [Suspect]
     Active Substance: BETAMETHASONE VALERATE
     Indication: DERMATITIS CONTACT
     Dosage: UNK UNK, BID
     Route: 061
     Dates: start: 20180707, end: 2018
  2. MOTRIN [Concomitant]
     Active Substance: IBUPROFEN
     Indication: PRODUCT USED FOR UNKNOWN INDICATION
     Dosage: UNK, PRN
     Route: 065

REACTIONS (4)
  - Dermatitis [Recovering/Resolving]
  - Allergic reaction to excipient [Recovering/Resolving]
  - Localised infection [Recovering/Resolving]
  - Drug hypersensitivity [Recovering/Resolving]

NARRATIVE: CASE EVENT DATE: 20180707
